FAERS Safety Report 7717203-0 (Version None)
Quarter: 2011Q3

REPORT INFORMATION
  Report Type: 
  Country: None (occurrence: None)
  Receive Date: 20110818
  Receipt Date: 20110713
  Transmission Date: 20111222
  Serious: No
  Sender: FDA-Public Use
  Company Number: 1000022150

PATIENT
  Sex: Female

DRUGS (1)
  1. VIIBRYD [Suspect]
     Dosage: 10 MG (10 M G, 1 IN 1 D), ORAL, 20 MG (20 MG, 1 IN 1 D), ORAL
     Route: 048

REACTIONS (1)
  - NAUSEA [None]
